FAERS Safety Report 21519830 (Version 1)
Quarter: 2022Q4

REPORT INFORMATION
  Report Type: Spontaneous
  Country: US (occurrence: US)
  Receive Date: 20221028
  Receipt Date: 20221028
  Transmission Date: 20230113
  Serious: Yes (Hospitalization)
  Sender: FDA-Public Use
  Company Number: US-MYLANLABS-2022M1118335

PATIENT
  Age: 29 Year
  Sex: Female

DRUGS (3)
  1. DOXORUBICIN [Suspect]
     Active Substance: DOXORUBICIN
     Indication: Invasive breast carcinoma
     Dosage: UNK, FOUR CYCLES OF NEOADJUVANT CHEMOTHERAPY WITH DOSE DENSE AC REGIMEN
     Route: 065
  2. CYCLOPHOSPHAMIDE [Suspect]
     Active Substance: CYCLOPHOSPHAMIDE
     Indication: Invasive breast carcinoma
     Dosage: UNK, FOUR CYCLES OF NEOADJUVANT CHEMOTHERAPY WITH DOSE DENSE AC REGIMEN
     Route: 065
  3. TAXOL [Suspect]
     Active Substance: PACLITAXEL
     Indication: Invasive breast carcinoma
     Dosage: UNK, DOSE DENSE
     Route: 065

REACTIONS (1)
  - Neutropenic colitis [Recovered/Resolved]
